FAERS Safety Report 20195550 (Version 1)
Quarter: 2021Q4

REPORT INFORMATION
  Report Type: Spontaneous
  Country: JP (occurrence: JP)
  Receive Date: 20211216
  Receipt Date: 20211216
  Transmission Date: 20220303
  Serious: Yes (Other)
  Sender: FDA-Public Use
  Company Number: JP-MYLANLABS-2021M1093378

PATIENT
  Age: 17 Year
  Sex: Female

DRUGS (1)
  1. EPIPEN [Suspect]
     Active Substance: EPINEPHRINE
     Indication: Product used for unknown indication
     Dosage: UNK
     Dates: start: 20211208, end: 20211208

REACTIONS (3)
  - Coma scale abnormal [Recovering/Resolving]
  - Oxygen saturation decreased [Recovering/Resolving]
  - Hypercapnia [Unknown]

NARRATIVE: CASE EVENT DATE: 20211208
